FAERS Safety Report 9387270 (Version 2)
Quarter: 2013Q3

REPORT INFORMATION
  Report Type: Spontaneous
  Country: FR (occurrence: FR)
  Receive Date: 20130708
  Receipt Date: 20130716
  Transmission Date: 20140515
  Serious: Yes (Life-Threatening, Hospitalization)
  Sender: FDA-Public Use
  Company Number: FR-JNJFOC-20130617815

PATIENT
  Age: 64 Year
  Sex: Female

DRUGS (6)
  1. HALDOL [Suspect]
     Indication: PRODUCT USED FOR UNKNOWN INDICATION
     Route: 048
     Dates: start: 201304
  2. CUBICIN [Suspect]
     Indication: SEPSIS
     Route: 042
     Dates: start: 20130503, end: 20130506
  3. CORDARONE [Suspect]
     Indication: PRODUCT USED FOR UNKNOWN INDICATION
     Route: 048
     Dates: start: 201304
  4. AMOXICILLINE [Concomitant]
     Route: 065
  5. BACTRIM [Concomitant]
     Route: 065
     Dates: end: 20130427
  6. CLINDAMYCIN [Concomitant]
     Route: 065
     Dates: end: 20130502

REACTIONS (1)
  - Renal failure acute [Recovered/Resolved]
